FAERS Safety Report 19934781 (Version 2)
Quarter: 2021Q4

REPORT INFORMATION
  Report Type: Report from Study
  Country: US (occurrence: US)
  Receive Date: 20211009
  Receipt Date: 20211013
  Transmission Date: 20220303
  Serious: Yes (Death, Life-Threatening, Hospitalization, Other)
  Sender: FDA-Public Use
  Company Number: US-UNITED THERAPEUTICS-UNT-2021-019616

PATIENT
  Age: 83 Year
  Sex: Female
  Weight: 57.28 kg

DRUGS (13)
  1. TREPROSTINIL SODIUM [Suspect]
     Active Substance: TREPROSTINIL SODIUM
     Indication: Pulmonary arterial hypertension
     Dosage: UNK
     Dates: start: 20210621
  2. TREPROSTINIL SODIUM [Suspect]
     Active Substance: TREPROSTINIL SODIUM
     Dosage: 60-120 ?G, QID
     Dates: start: 2021, end: 2021
  3. TREPROSTINIL SODIUM [Suspect]
     Active Substance: TREPROSTINIL SODIUM
     Dosage: UNK
  4. TREPROSTINIL SODIUM [Suspect]
     Active Substance: TREPROSTINIL SODIUM
     Dosage: 72 ?G
     Dates: start: 20210927, end: 202109
  5. TREPROSTINIL SODIUM [Suspect]
     Active Substance: TREPROSTINIL SODIUM
     Dosage: 66 ?G
     Dates: start: 202109, end: 202109
  6. TREPROSTINIL SODIUM [Suspect]
     Active Substance: TREPROSTINIL SODIUM
     Dosage: 60 ?G
     Dates: start: 2021, end: 2021
  7. TREPROSTINIL SODIUM [Suspect]
     Active Substance: TREPROSTINIL SODIUM
     Dosage: 54 ?G
     Dates: start: 2021
  8. TREPROSTINIL SODIUM [Suspect]
     Active Substance: TREPROSTINIL SODIUM
     Dosage: 18-54 ?G, QID
     Dates: start: 2021
  9. INFLUENZA VIRUS VACCINE [Suspect]
     Active Substance: INFLUENZA VIRUS VACCINE
     Indication: Immunisation
     Dosage: UNK
     Route: 065
     Dates: start: 20210926, end: 20210926
  10. IMDUR [Suspect]
     Active Substance: ISOSORBIDE MONONITRATE
     Indication: Product used for unknown indication
     Dosage: 60 MG
     Route: 065
     Dates: end: 2021
  11. LISINOPRIL [Suspect]
     Active Substance: LISINOPRIL
     Indication: Product used for unknown indication
     Dosage: 40 MG
     Route: 065
     Dates: end: 2021
  12. OPSUMIT [Concomitant]
     Active Substance: MACITENTAN
     Indication: Product used for unknown indication
     Dosage: UNK
     Route: 065
  13. AMLODIPINE [Concomitant]
     Active Substance: AMLODIPINE BESYLATE
     Indication: Product used for unknown indication
     Dosage: UNK
     Route: 065

REACTIONS (21)
  - Cardiac arrest [Fatal]
  - COVID-19 pneumonia [Fatal]
  - Syncope [Unknown]
  - Blood pressure fluctuation [Unknown]
  - Blood pressure decreased [Not Recovered/Not Resolved]
  - Dysarthria [Unknown]
  - Confusional state [Unknown]
  - Heart rate abnormal [Unknown]
  - Cold sweat [Unknown]
  - Pyrexia [Unknown]
  - COVID-19 [Unknown]
  - Burning sensation [Unknown]
  - Oropharyngeal pain [Unknown]
  - Cough [Unknown]
  - Head discomfort [Unknown]
  - Dizziness [Unknown]
  - Throat irritation [Unknown]
  - Ear congestion [Not Recovered/Not Resolved]
  - Headache [Not Recovered/Not Resolved]
  - Dyspnoea [Unknown]
  - Off label use [Recovered/Resolved]

NARRATIVE: CASE EVENT DATE: 20210101
